FAERS Safety Report 9455682 (Version 1)
Quarter: 2013Q3

REPORT INFORMATION
  Report Type: Spontaneous
  Country: HN (occurrence: HN)
  Receive Date: 20130813
  Receipt Date: 20130813
  Transmission Date: 20140515
  Serious: Yes (Death)
  Sender: FDA-Public Use
  Company Number: HN-PFIZER INC-2013231777

PATIENT
  Age: 86 Year
  Sex: Male

DRUGS (4)
  1. TYGACIL [Suspect]
     Indication: CHOLANGITIS
     Dosage: 100 MG, SINGLE
  2. CIPROFLOXACIN [Concomitant]
     Indication: CHOLANGITIS
  3. MEROPENEM [Concomitant]
     Indication: CHOLANGITIS
  4. METRONIDAZOLE [Concomitant]
     Indication: CHOLANGITIS

REACTIONS (1)
  - Death [Fatal]
